FAERS Safety Report 22197616 (Version 1)
Quarter: 2023Q2

REPORT INFORMATION
  Report Type: Report from Study
  Country: DE (occurrence: DE)
  Receive Date: 20230411
  Receipt Date: 20230411
  Transmission Date: 20230722
  Serious: Yes (Other)
  Sender: FDA-Public Use
  Company Number: DE-KYOWAKIRIN-2023BKK005348

PATIENT

DRUGS (47)
  1. POTELIGEO [Suspect]
     Active Substance: MOGAMULIZUMAB-KPKC
     Indication: Cutaneous T-cell lymphoma stage IV
     Dosage: 55 MG (1 MG/KG, CYCLE 1 DAY 1)
     Route: 065
     Dates: start: 20200629
  2. POTELIGEO [Suspect]
     Active Substance: MOGAMULIZUMAB-KPKC
     Dosage: 55 MG (1 MG/KG, CYCLE 1 DAY 8)
     Route: 065
     Dates: start: 20200706
  3. POTELIGEO [Suspect]
     Active Substance: MOGAMULIZUMAB-KPKC
     Dosage: 55 MG (1 MG/KG, CYCLE 1 DAY 15)
     Route: 065
     Dates: start: 20200713
  4. POTELIGEO [Suspect]
     Active Substance: MOGAMULIZUMAB-KPKC
     Dosage: 55 MG (1 MG/KG, CYCLE 1 DAY 22)
     Route: 065
     Dates: start: 20200720
  5. POTELIGEO [Suspect]
     Active Substance: MOGAMULIZUMAB-KPKC
     Dosage: 55 MG (1 MG/KG, CYCLE 2 DAY 1)
     Route: 065
     Dates: start: 20200803
  6. POTELIGEO [Suspect]
     Active Substance: MOGAMULIZUMAB-KPKC
     Dosage: 55 MG (1 MG/KG, CYCLE 2 DAY 15)
     Route: 065
     Dates: start: 20200817
  7. POTELIGEO [Suspect]
     Active Substance: MOGAMULIZUMAB-KPKC
     Dosage: 55 MG (1 MG/KG, CYCLE 3 DAY 1)
     Route: 065
     Dates: start: 20201019
  8. POTELIGEO [Suspect]
     Active Substance: MOGAMULIZUMAB-KPKC
     Dosage: 55 MG (1 MG/KG, CYCLE 3 DAY 15)
     Route: 065
     Dates: start: 20201103
  9. POTELIGEO [Suspect]
     Active Substance: MOGAMULIZUMAB-KPKC
     Dosage: 55 MG (1 MG/KG, CYCLE 4 DAY 1)
     Route: 065
     Dates: start: 20201116
  10. POTELIGEO [Suspect]
     Active Substance: MOGAMULIZUMAB-KPKC
     Dosage: 55 MG (1 MG/KG, CYCLE 4 DAY 15)
     Route: 065
     Dates: start: 20201130
  11. POTELIGEO [Suspect]
     Active Substance: MOGAMULIZUMAB-KPKC
     Dosage: 55 MG (1 MG/KG, CYCLE 5 DAY 1)
     Route: 065
     Dates: start: 20201214
  12. POTELIGEO [Suspect]
     Active Substance: MOGAMULIZUMAB-KPKC
     Dosage: 55 MG (1 MG/KG, CYCLE 5 DAY 15)
     Route: 065
     Dates: start: 20210111
  13. POTELIGEO [Suspect]
     Active Substance: MOGAMULIZUMAB-KPKC
     Dosage: 55 MG (1 MG/KG, CYCLE 6 DAY 1)
     Route: 065
     Dates: start: 20210125
  14. POTELIGEO [Suspect]
     Active Substance: MOGAMULIZUMAB-KPKC
     Dosage: 55 MG (1 MG/KG, CYCLE 6 DAY 15)
     Route: 065
     Dates: start: 20210208
  15. POTELIGEO [Suspect]
     Active Substance: MOGAMULIZUMAB-KPKC
     Dosage: 55 MG (1 MG/KG, CYCLE 7 DAY 1)
     Route: 065
     Dates: start: 20210222
  16. POTELIGEO [Suspect]
     Active Substance: MOGAMULIZUMAB-KPKC
     Dosage: 55 MG (1 MG/KG, CYCLE 7 DAY 15)
     Route: 065
     Dates: start: 20210303
  17. POTELIGEO [Suspect]
     Active Substance: MOGAMULIZUMAB-KPKC
     Dosage: 55 MG (1 MG/KG, CYCLE 8 DAY 1)
     Route: 065
     Dates: start: 20210322
  18. POTELIGEO [Suspect]
     Active Substance: MOGAMULIZUMAB-KPKC
     Dosage: 55 MG (1 MG/KG, CYCLE 8 DAY 15)
     Route: 065
     Dates: start: 20210406
  19. POTELIGEO [Suspect]
     Active Substance: MOGAMULIZUMAB-KPKC
     Dosage: 55 MG (1 MG/KG, CYCLE 9 DAY 1)
     Route: 065
     Dates: start: 20210517
  20. POTELIGEO [Suspect]
     Active Substance: MOGAMULIZUMAB-KPKC
     Dosage: 55 MG (1 MG/KG, CYCLE 9 DAY 15)
     Route: 065
     Dates: start: 20210531
  21. POTELIGEO [Suspect]
     Active Substance: MOGAMULIZUMAB-KPKC
     Dosage: 55 MG (1 MG/KG, CYCLE 10 DAY 1)
     Route: 065
     Dates: start: 20210628
  22. POTELIGEO [Suspect]
     Active Substance: MOGAMULIZUMAB-KPKC
     Dosage: 55 MG (1 MG/KG, CYCLE 10 DAY 15)
     Route: 065
     Dates: start: 20210712
  23. POTELIGEO [Suspect]
     Active Substance: MOGAMULIZUMAB-KPKC
     Dosage: 55 MG (1 MG/KG, CYCLE 11 DAY 1)
     Route: 065
     Dates: start: 20210726
  24. POTELIGEO [Suspect]
     Active Substance: MOGAMULIZUMAB-KPKC
     Dosage: 55 MG (1 MG/KG, CYCLE 11 DAY 15)
     Route: 065
     Dates: start: 20210816
  25. POTELIGEO [Suspect]
     Active Substance: MOGAMULIZUMAB-KPKC
     Dosage: 55 MG (1 MG/KG, CYCLE 12 DAY 1)
     Route: 065
     Dates: start: 20210830
  26. POTELIGEO [Suspect]
     Active Substance: MOGAMULIZUMAB-KPKC
     Dosage: 55 MG (1 MG/KG, CYCLE 12 DAY 15)
     Route: 065
     Dates: start: 20210920
  27. POTELIGEO [Suspect]
     Active Substance: MOGAMULIZUMAB-KPKC
     Dosage: 55 MG (1 MG/KG, CYCLE 13 DAY 1)
     Route: 065
     Dates: start: 20211129
  28. POTELIGEO [Suspect]
     Active Substance: MOGAMULIZUMAB-KPKC
     Dosage: 55 MG (1 MG/KG, CYCLE 13 DAY 15)
     Route: 065
     Dates: start: 20211220
  29. POTELIGEO [Suspect]
     Active Substance: MOGAMULIZUMAB-KPKC
     Dosage: 55 MG (1 MG/KG, CYCLE 14 DAY 1)
     Route: 065
     Dates: start: 20220110
  30. POTELIGEO [Suspect]
     Active Substance: MOGAMULIZUMAB-KPKC
     Dosage: 55 MG (1 MG/KG, CYCLE 14 DAY 15)
     Route: 065
     Dates: start: 20220124
  31. POTELIGEO [Suspect]
     Active Substance: MOGAMULIZUMAB-KPKC
     Dosage: 55 MG (1 MG/KG, CYCLE 15 DAY 1)
     Route: 065
     Dates: start: 20220207
  32. POTELIGEO [Suspect]
     Active Substance: MOGAMULIZUMAB-KPKC
     Dosage: 55 MG (1 MG/KG, CYCLE 15 DAY 15)
     Route: 065
     Dates: start: 20220516
  33. POTELIGEO [Suspect]
     Active Substance: MOGAMULIZUMAB-KPKC
     Dosage: 55 MG (1 MG/KG, CYCLE 16 DAY 1)
     Route: 065
     Dates: start: 20220531
  34. POTELIGEO [Suspect]
     Active Substance: MOGAMULIZUMAB-KPKC
     Dosage: 55 MG (1 MG/KG, CYCLE 16 DAY 15)
     Route: 065
     Dates: start: 20220613
  35. POTELIGEO [Suspect]
     Active Substance: MOGAMULIZUMAB-KPKC
     Dosage: 55 MG (1 MG/KG, CYCLE 17 DAY 1)
     Route: 065
     Dates: start: 20220711
  36. POTELIGEO [Suspect]
     Active Substance: MOGAMULIZUMAB-KPKC
     Dosage: 55 MG (1 MG/KG, CYCLE 17 DAY 15)
     Route: 065
     Dates: start: 20220808
  37. POTELIGEO [Suspect]
     Active Substance: MOGAMULIZUMAB-KPKC
     Dosage: 55 MG (1 MG/KG, CYCLE 18 DAY 1)
     Route: 065
     Dates: start: 20220822
  38. POTELIGEO [Suspect]
     Active Substance: MOGAMULIZUMAB-KPKC
     Dosage: 55 MG (1 MG/KG, CYCLE 18 DAY 15)
     Route: 065
     Dates: start: 20220905
  39. POTELIGEO [Suspect]
     Active Substance: MOGAMULIZUMAB-KPKC
     Dosage: 55 MG (1 MG/KG, CYCLE 19 DAY 1)
     Route: 065
     Dates: start: 20221018
  40. POTELIGEO [Suspect]
     Active Substance: MOGAMULIZUMAB-KPKC
     Dosage: 55 MG (1 MG/KG)
     Route: 065
     Dates: start: 20220419
  41. POTELIGEO [Suspect]
     Active Substance: MOGAMULIZUMAB-KPKC
     Dosage: UNK
     Route: 065
     Dates: start: 20210614
  42. POTELIGEO [Suspect]
     Active Substance: MOGAMULIZUMAB-KPKC
     Dosage: UNK
     Route: 065
     Dates: start: 20210503
  43. POTELIGEO [Suspect]
     Active Substance: MOGAMULIZUMAB-KPKC
     Dosage: UNK
     Route: 065
     Dates: start: 20210517
  44. POTELIGEO [Suspect]
     Active Substance: MOGAMULIZUMAB-KPKC
     Dosage: UNK
     Route: 065
     Dates: start: 20221019
  45. CARBIMAZOLE [Concomitant]
     Active Substance: CARBIMAZOLE
     Indication: Product used for unknown indication
     Dosage: UNK
     Route: 065
     Dates: start: 20211005, end: 20211101
  46. ACETAMINOPHEN [Concomitant]
     Active Substance: ACETAMINOPHEN
     Indication: Prophylaxis
     Dosage: 500 MG
     Route: 065
     Dates: start: 20200629, end: 20221018
  47. LEVOCETIRIZINE [Concomitant]
     Active Substance: LEVOCETIRIZINE
     Indication: Prophylaxis
     Dosage: 5 MG
     Route: 065
     Dates: start: 20200629, end: 20221018

REACTIONS (1)
  - Hyperthyroidism [Recovered/Resolved]

NARRATIVE: CASE EVENT DATE: 20211005
